FAERS Safety Report 9172144 (Version 2)
Quarter: 2013Q4

REPORT INFORMATION
  Report Type: Spontaneous
  Country: US (occurrence: US)
  Receive Date: 20130319
  Receipt Date: 20131122
  Transmission Date: 20140711
  Serious: Yes (Hospitalization, Other)
  Sender: FDA-Public Use
  Company Number: US-AMGEN-USASP2013018122

PATIENT
  Age: 63 Year
  Sex: Female
  Weight: 95.24 kg

DRUGS (23)
  1. ENBREL [Suspect]
     Indication: RHEUMATOID ARTHRITIS
     Dosage: 50 MG, QWK
     Route: 058
     Dates: start: 20060601, end: 201212
  2. AVAPRO [Concomitant]
     Dosage: 75 MG, UNK
  3. ATENOLOL [Concomitant]
     Dosage: 25 MG, UNK
  4. ASA [Concomitant]
     Dosage: 81 MG, UNK
  5. TIAZAC                             /00489702/ [Concomitant]
     Dosage: 120 MG/24
  6. HYTRIN [Concomitant]
     Dosage: 10 MG, UNK
  7. LASIX                              /00032601/ [Concomitant]
     Dosage: 20 MG, UNK
  8. FLEXERIL                           /00428402/ [Concomitant]
     Dosage: 10 MG, UNK
  9. PRAVACHOL [Concomitant]
     Dosage: 20 MG, UNK
  10. POTASSIUM CHLORIDE [Concomitant]
     Dosage: 10 MEQ, UNK
  11. TRENTAL [Concomitant]
     Dosage: 400 MG, UNK
  12. IRON [Concomitant]
     Dosage: 325 MG, UNK
  13. VITAMIN D                          /00107901/ [Concomitant]
     Dosage: 400 UNIT, UNK
  14. TUMS ULTRA [Concomitant]
     Dosage: 1000 MG, UNK
  15. SULFASALAZIN [Concomitant]
     Dosage: 500 MG, UNK
  16. PREDNISONE [Concomitant]
     Dosage: 10 MG, UNK
  17. FOLIC ACID [Concomitant]
     Dosage: UNK
  18. SPIRIVA [Concomitant]
     Dosage: UNK
  19. FLOVENT HFA [Concomitant]
     Dosage: 110 MCG, UNK
  20. XALATAN [Concomitant]
     Dosage: 0.005 %, UNK
  21. PLAVIX [Concomitant]
     Dosage: 75 MG, UNK
  22. EPIPEN [Concomitant]
     Dosage: 0.3 MG, UNK
  23. XOPENEX HFA [Concomitant]
     Dosage: UNK

REACTIONS (1)
  - Cellulitis staphylococcal [Recovered/Resolved]
